FAERS Safety Report 10491371 (Version 1)
Quarter: 2014Q4

REPORT INFORMATION
  Report Type: Spontaneous
  Country: US (occurrence: US)
  Receive Date: 20141002
  Receipt Date: 20141002
  Transmission Date: 20150528
  Serious: No
  Sender: FDA-Public Use
  Company Number: US-GLAXOSMITHKLINE-A1052063A

PATIENT
  Age: 64 Year
  Sex: Male

DRUGS (5)
  1. UNKNOWN MEDICATION [Concomitant]
     Active Substance: UNSPECIFIED INGREDIENT
     Indication: HYPERSENSITIVITY
  2. ADVAIR HFA [Suspect]
     Active Substance: FLUTICASONE PROPIONATE\SALMETEROL XINAFOATE
     Indication: BRONCHITIS
     Dosage: 1PUFF TWICE PER DAY
     Route: 055
  3. ADVAIR HFA [Suspect]
     Active Substance: FLUTICASONE PROPIONATE\SALMETEROL XINAFOATE
     Indication: BRONCHITIS
     Dosage: 1PUFF TWICE PER DAY
     Route: 055
  4. ALBUTEROL INHALER [Concomitant]
     Active Substance: ALBUTEROL
  5. VITAMINS [Concomitant]
     Active Substance: VITAMINS

REACTIONS (1)
  - Dyspnoea exertional [Unknown]
